FAERS Safety Report 24304591 (Version 1)
Quarter: 2024Q3

REPORT INFORMATION
  Report Type: Other
  Country: US (occurrence: US)
  Receive Date: 20240910
  Receipt Date: 20240910
  Transmission Date: 20241016
  Serious: No
  Sender: SIGMA TAU
  Company Number: US-LEADIANT BIOSCIENCES, INC.-2023STPI000370

PATIENT
  Sex: Female

DRUGS (1)
  1. MATULANE [Suspect]
     Active Substance: PROCARBAZINE HYDROCHLORIDE
     Indication: Hodgkin^s disease nodular sclerosis stage III
     Dosage: 50 MILLIGRAM, 3 CAPSULES (150 MG TOTAL) DAILY ON DAYS 1-7 OF EACH 21 DAY CYCLE
     Route: 048
     Dates: start: 20230830

REACTIONS (4)
  - Depression [Unknown]
  - Fatigue [Unknown]
  - Anxiety [Unknown]
  - Sleep disorder [Unknown]
